FAERS Safety Report 21928200 (Version 2)
Quarter: 2023Q1

REPORT INFORMATION
  Report Type: Report from Study
  Country: US (occurrence: US)
  Receive Date: 20230130
  Receipt Date: 20230209
  Transmission Date: 20230417
  Serious: Yes (Hospitalization, Other)
  Sender: FDA-Public Use
  Company Number: US-GILEAD-2023-0614565

PATIENT
  Sex: Female

DRUGS (1)
  1. AZTREONAM LYSINE [Suspect]
     Active Substance: AZTREONAM LYSINE
     Indication: Pseudomonas infection
     Dosage: INHALE 1 VIAL (75 MG) VIA ALTERA NEBULIZER THREE TIMES DAILY FOR 28 DAYS ON AND 28 DAYS OFF
     Route: 055

REACTIONS (5)
  - Pleural effusion [Not Recovered/Not Resolved]
  - Bacterial infection [Not Recovered/Not Resolved]
  - Pneumothorax [Not Recovered/Not Resolved]
  - Pneumonia [Not Recovered/Not Resolved]
  - Therapy interrupted [Not Recovered/Not Resolved]
